FAERS Safety Report 22640044 (Version 2)
Quarter: 2023Q2

REPORT INFORMATION
  Report Type: Spontaneous
  Country: CA (occurrence: CA)
  Receive Date: 20230626
  Receipt Date: 20230629
  Transmission Date: 20230722
  Serious: Yes (Other)
  Sender: FDA-Public Use
  Company Number: CA-CELLTRION INC.-2023CA007136

PATIENT

DRUGS (2)
  1. INFLECTRA [Suspect]
     Active Substance: INFLIXIMAB-DYYB
     Indication: Crohn^s disease
     Dosage: EVERY 4 WEEKS
     Route: 042
     Dates: start: 20230517
  2. INFLECTRA [Suspect]
     Active Substance: INFLIXIMAB-DYYB
     Dosage: (5MG/KG), EVERY 4 WEEKS
     Route: 042
     Dates: start: 20230615

REACTIONS (7)
  - Abdominal pain [Recovering/Resolving]
  - Muscle spasms [Recovering/Resolving]
  - Off label use [Unknown]
  - Pruritus [Unknown]
  - Anal fissure [Recovered/Resolved]
  - Fistula [Recovered/Resolved]
  - Arthralgia [Not Recovered/Not Resolved]

NARRATIVE: CASE EVENT DATE: 20230517
